FAERS Safety Report 5195316-8 (Version None)
Quarter: 2006Q4

REPORT INFORMATION
  Report Type: 
  Country: None (occurrence: None)
  Receive Date: 20061229
  Receipt Date: 20061218
  Transmission Date: 20070319
  Serious: Yes (Hospitalization, Other)
  Sender: FDA-Public Use
  Company Number: US-PFIZER INC-2006154586

PATIENT
  Sex: Female
  Weight: 61.2 kg

DRUGS (3)
  1. CORTEF [Suspect]
     Indication: ADRENAL DISORDER
  2. THYROID TAB [Concomitant]
  3. LEVOXYL [Concomitant]

REACTIONS (10)
  - ARTHRALGIA [None]
  - DRUG INEFFECTIVE [None]
  - HYPERSENSITIVITY [None]
  - LOSS OF CONSCIOUSNESS [None]
  - MOBILITY DECREASED [None]
  - OEDEMA PERIPHERAL [None]
  - PAIN IN EXTREMITY [None]
  - PHARMACEUTICAL PRODUCT COMPLAINT [None]
  - PRURITUS [None]
  - SKIN BURNING SENSATION [None]
